FAERS Safety Report 6530002-0 (Version None)
Quarter: 2010Q1

REPORT INFORMATION
  Report Type: 
  Country: None (occurrence: None)
  Receive Date: 20100107
  Receipt Date: 20091224
  Transmission Date: 20100710
  Serious: Yes (Hospitalization)
  Sender: FDA-Public Use
  Company Number: FR-MYLANLABS-2009S1021917

PATIENT
  Age: 47 Year
  Sex: Male

DRUGS (5)
  1. METHOTREXATE [Suspect]
     Indication: ACUTE LYMPHOCYTIC LEUKAEMIA
     Dates: start: 20090924, end: 20090925
  2. ZOPHREN [Concomitant]
  3. ONCOVIN [Concomitant]
  4. PURINETHOL [Concomitant]
  5. CALCIUM FOLINATE [Concomitant]

REACTIONS (3)
  - MUCOSAL INFLAMMATION [None]
  - RENAL FAILURE [None]
  - RENAL FAILURE ACUTE [None]
